FAERS Safety Report 9475787 (Version 1)
Quarter: 2013Q3

REPORT INFORMATION
  Report Type: Spontaneous
  Country: US (occurrence: US)
  Receive Date: 20130826
  Receipt Date: 20130826
  Transmission Date: 20140515
  Serious: No
  Sender: FDA-Public Use
  Company Number: US-PFIZER INC-2013244274

PATIENT
  Sex: Male

DRUGS (6)
  1. LYRICA [Suspect]
     Indication: PAIN
     Dosage: UNK
     Route: 048
  2. LYRICA [Suspect]
     Indication: PAIN IN EXTREMITY
  3. LYRICA [Suspect]
     Indication: PAIN IN EXTREMITY
  4. GABAPENTIN [Suspect]
     Indication: PAIN
     Dosage: UNK
  5. GABAPENTIN [Suspect]
     Indication: PAIN IN EXTREMITY
  6. GABAPENTIN [Suspect]
     Indication: PAIN IN EXTREMITY

REACTIONS (14)
  - Gait disturbance [Unknown]
  - Balance disorder [Unknown]
  - Dizziness [Unknown]
  - Dry mouth [Unknown]
  - Asthenia [Unknown]
  - Amnesia [Unknown]
  - Irritability [Unknown]
  - Hypoaesthesia [Unknown]
  - Visual impairment [Unknown]
  - Fatigue [Unknown]
  - Memory impairment [Unknown]
  - Vision blurred [Unknown]
  - Local swelling [Unknown]
  - Insomnia [Unknown]
